FAERS Safety Report 9249416 (Version 1)
Quarter: 2013Q2

REPORT INFORMATION
  Report Type: Spontaneous
  Country: US (occurrence: US)
  Receive Date: 20130423
  Receipt Date: 20130423
  Transmission Date: 20140414
  Serious: Yes (Death)
  Sender: FDA-Public Use
  Company Number: US-GLAXOSMITHKLINE-A1020231A

PATIENT
  Age: 50 Year
  Sex: Female

DRUGS (2)
  1. VENTOLIN HFA [Suspect]
     Indication: ASTHMA
     Route: 055
     Dates: start: 2010
  2. SPIRIVA [Concomitant]

REACTIONS (2)
  - Death [Fatal]
  - Resuscitation [Unknown]
